FAERS Safety Report 23097149 (Version 1)
Quarter: 2023Q4

REPORT INFORMATION
  Report Type: Spontaneous
  Country: NL (occurrence: NL)
  Receive Date: 20231023
  Receipt Date: 20231023
  Transmission Date: 20240110
  Serious: Yes (Other)
  Sender: FDA-Public Use
  Company Number: NL-LRB-00894054

PATIENT
  Sex: Female
  Weight: 83 kg

DRUGS (15)
  1. OLANZAPINE [Suspect]
     Active Substance: OLANZAPINE
     Indication: Psychotic disorder
     Dosage: 10 MILLIGRAM, DAILY
     Route: 065
     Dates: start: 20121211
  2. VENLAFAXINE [Suspect]
     Active Substance: VENLAFAXINE HYDROCHLORIDE
     Indication: Depression
     Dosage: 300 MILLIGRAM, DAILY
     Route: 065
     Dates: start: 20121211
  3. LITHIUM CARBONATE [Suspect]
     Active Substance: LITHIUM CARBONATE
     Indication: Bipolar disorder
     Dosage: 800 MILLIGRAM, DAILY
     Route: 065
     Dates: start: 20230628, end: 20230704
  4. LIDOCAINE [Concomitant]
     Active Substance: LIDOCAINE
     Indication: Product used for unknown indication
     Dosage: CREAM FOR RECTAL USE, 30 MG/G (MILLIGRAM PER GRAM)
     Route: 065
  5. SPIRONOLACTONE [Concomitant]
     Active Substance: SPIRONOLACTONE
     Indication: Product used for unknown indication
     Dosage: TABLET, 12,5 MG (MILLIGRAM)
     Route: 065
  6. PANTOPRAZOLE SODIUM [Concomitant]
     Active Substance: PANTOPRAZOLE SODIUM
     Indication: Product used for unknown indication
     Dosage: GASTRO-RESISTANT TABLET, 20 MG (MILLIGRAM)
     Route: 065
  7. METFORMIN HYDROCHLORIDE [Concomitant]
     Active Substance: METFORMIN HYDROCHLORIDE
     Indication: Product used for unknown indication
     Dosage: TABLET, 500 MG (MILLIGRAM)
     Route: 065
  8. ATORVASTATIN [Concomitant]
     Active Substance: ATORVASTATIN
     Indication: Product used for unknown indication
     Dosage: TABLET, 40 MG (MILLIGRAM)
     Route: 065
  9. SACUBITRIL\VALSARTAN [Concomitant]
     Active Substance: SACUBITRIL\VALSARTAN
     Indication: Product used for unknown indication
     Dosage: TABLET, 24/26 MG (MILLIGRAM)
     Route: 065
  10. POLYETHYLENE GLYCOLS [Concomitant]
     Active Substance: POLYETHYLENE GLYCOLS
     Indication: Product used for unknown indication
     Dosage: POWDER FOR DRINK, 1 GRAM PER GRAM
     Route: 065
  11. CHOLECALCIFEROL [Concomitant]
     Active Substance: CHOLECALCIFEROL
     Indication: Product used for unknown indication
     Dosage: CAPSULE, 5600 UNITS
     Route: 065
  12. ACETAMINOPHEN [Concomitant]
     Active Substance: ACETAMINOPHEN
     Indication: Product used for unknown indication
     Dosage: TABLET, 1000 MG (MILLIGRAM)
     Route: 065
  13. BUMETANIDE [Concomitant]
     Active Substance: BUMETANIDE
     Indication: Product used for unknown indication
     Dosage: TABLET, 1 MG (MILLIGRAM)
     Route: 065
  14. METOPROLOL [Concomitant]
     Active Substance: METOPROLOL
     Indication: Product used for unknown indication
     Dosage: MODIFIED-RELEASE TABLET, 100 MG (MILLIGRAM)
     Route: 065
  15. COSMETICS [Concomitant]
     Active Substance: COSMETICS
     Indication: Product used for unknown indication
     Dosage: CREME
     Route: 065

REACTIONS (5)
  - Depressed level of consciousness [Recovering/Resolving]
  - Urinary incontinence [Recovering/Resolving]
  - Chills [Recovering/Resolving]
  - Confusional state [Recovering/Resolving]
  - Hyperhidrosis [Recovering/Resolving]
